FAERS Safety Report 13855427 (Version 1)
Quarter: 2017Q3

REPORT INFORMATION
  Report Type: Spontaneous
  Country: US (occurrence: US)
  Receive Date: 20170810
  Receipt Date: 20170810
  Transmission Date: 20171127
  Serious: No
  Sender: FDA-Public Use
  Company Number: US-VIFOR (INTERNATIONAL) INC.-VIT-2017-07250

PATIENT
  Sex: Male

DRUGS (16)
  1. NEPHRO-VITE [Concomitant]
  2. PROCRIT [Concomitant]
     Active Substance: ERYTHROPOIETIN
  3. NEPRO [Concomitant]
     Active Substance: DIETARY SUPPLEMENT
  4. PARACETAMOL [Concomitant]
     Active Substance: ACETAMINOPHEN
  5. LIDOCAINE. [Concomitant]
     Active Substance: LIDOCAINE
  6. FERROUS SULFATE. [Concomitant]
     Active Substance: FERROUS SULFATE
  7. CLONAZEPAM. [Concomitant]
     Active Substance: CLONAZEPAM
  8. PROCHLORPERAZINE MALEATE. [Concomitant]
     Active Substance: PROCHLORPERAZINE MALEATE
  9. LEVOTHYROXINE SODIUM. [Concomitant]
     Active Substance: LEVOTHYROXINE SODIUM
  10. VELTASSA [Suspect]
     Active Substance: PATIROMER
     Indication: HYPERKALAEMIA
     Route: 048
     Dates: start: 20170321
  11. VITAMIN C [Concomitant]
     Active Substance: ASCORBIC ACID
  12. LORAZEPAM. [Concomitant]
     Active Substance: LORAZEPAM
  13. LEVAQUIN [Concomitant]
     Active Substance: LEVOFLOXACIN
  14. CARVEDILOL. [Concomitant]
     Active Substance: CARVEDILOL
  15. ASPIRIN LOW DOSE [Concomitant]
     Active Substance: ASPIRIN
  16. VITAMIN D3 [Concomitant]
     Active Substance: CHOLECALCIFEROL

REACTIONS (1)
  - Rash [Unknown]

NARRATIVE: CASE EVENT DATE: 2017
